FAERS Safety Report 26161644 (Version 3)
Quarter: 2025Q4

REPORT INFORMATION
  Report Type: Spontaneous
  Country: EU (occurrence: EU)
  Receive Date: 20251216
  Receipt Date: 20251226
  Transmission Date: 20260118
  Serious: Yes (Other)
  Sender: AUROBINDO
  Company Number: EU-MLMSERVICE-20251203-PI727570-00202-1

PATIENT
  Age: 27 Year
  Sex: Female

DRUGS (11)
  1. LINEZOLID [Suspect]
     Active Substance: LINEZOLID
     Indication: Product used for unknown indication
     Dosage: 600 MILLIGRAM, TWO TIMES A DAY
     Route: 061
     Dates: start: 201911, end: 202004
  2. LINEZOLID [Suspect]
     Active Substance: LINEZOLID
     Dosage: 12 MILLIGRAM, TWO TIMES A DAY
     Dates: start: 202003, end: 202110
  3. LINEZOLID [Suspect]
     Active Substance: LINEZOLID
     Dosage: 12 MILLIGRAM, TWO TIMES A DAY
     Dates: start: 202004, end: 202110
  4. MYCOPHENOLATE MOFETIL [Suspect]
     Active Substance: MYCOPHENOLATE MOFETIL
     Indication: Immunosuppression
     Dosage: 720 MILLIGRAM, ONCE A DAY
     Route: 065
     Dates: start: 201911
  5. MYCOPHENOLATE MOFETIL [Suspect]
     Active Substance: MYCOPHENOLATE MOFETIL
     Dosage: 360 MILLIGRAM, ONCE A DAY
     Route: 065
     Dates: start: 202001
  6. TACROLIMUS [Suspect]
     Active Substance: TACROLIMUS
     Indication: Immunosuppressant drug therapy
     Dosage: UNK [THE TACROLIMUS LEVELS WERE ADJUSTED AT EACH VISIT IN ORDER TO ACHIEVE SERUM CONCENTRATIONS BETWEEN 5?6 NG/ML.]
     Route: 065
  7. PREDNISONE [Suspect]
     Active Substance: PREDNISONE
     Indication: Immunosuppressant drug therapy
     Dosage: 40 MILLIGRAM, ONCE A DAY
     Route: 065
     Dates: start: 201911, end: 2020
  8. PREDNISONE [Suspect]
     Active Substance: PREDNISONE
     Dosage: 4 MILLIGRAM, ONCE A DAY (GRADUALLY TAPERED)
     Route: 065
  9. CLOFZIMINE [Concomitant]
     Indication: Product used for unknown indication
     Dosage: 100 MILLIGRAM, ONCE A DAY
     Route: 061
     Dates: start: 201911
  10. AMIKACIN [Concomitant]
     Active Substance: AMIKACIN
     Indication: Product used for unknown indication
     Dosage: 500 MILLIGRAM, TWO TIMES A DAY
     Dates: start: 201911
  11. AZITHROMYCIN [Concomitant]
     Active Substance: AZITHROMYCIN
     Indication: Product used for unknown indication
     Dosage: 250 MILLIGRAM
     Route: 061

REACTIONS (2)
  - Myelosuppression [Recovering/Resolving]
  - Mycobacterium abscessus infection [Recovered/Resolved]

NARRATIVE: CASE EVENT DATE: 20200101
